FAERS Safety Report 23470898 (Version 1)
Quarter: 2024Q1

REPORT INFORMATION
  Report Type: Spontaneous
  Country: US (occurrence: US)
  Receive Date: 20240202
  Receipt Date: 20240202
  Transmission Date: 20240410
  Serious: Yes (Death, Other)
  Sender: FDA-Public Use
  Company Number: US-AMGEN-USASP2024016050

PATIENT

DRUGS (11)
  1. PEGFILGRASTIM [Suspect]
     Active Substance: PEGFILGRASTIM
     Indication: Autologous haematopoietic stem cell transplant
     Dosage: D + 6 AND D + 13 AFTER THE START OF D-PACE
     Route: 065
  2. PEGFILGRASTIM [Suspect]
     Active Substance: PEGFILGRASTIM
     Indication: Off label use
  3. DEXAMETHASONE [Concomitant]
     Active Substance: DEXAMETHASONE
     Dosage: 40 MILLIGRAM, QD, 4-DAY COURSE
  4. DEXAMETHASONE [Concomitant]
     Active Substance: DEXAMETHASONE
     Dosage: PO DAYS -4 TO -1 AND + 2 TO + 5
  5. DOXORUBICIN [Concomitant]
     Active Substance: DOXORUBICIN
     Dosage: 10 MILLIGRAM/SQ. METER, QD
  6. CISPLATIN [Concomitant]
     Active Substance: CISPLATIN
     Dosage: 10 MILLIGRAM/SQ. METER, QD, CONTINUOUS INFUSION
  7. CYCLOPHOSPHAMIDE [Concomitant]
     Active Substance: CYCLOPHOSPHAMIDE
     Dosage: 400 MILLIGRAM/SQ. METER, QD
  8. ETOPOSIDE [Concomitant]
     Active Substance: ETOPOSIDE
     Dosage: 40 MILLIGRAM/SQ. METER, QD
  9. BORTEZOMIB [Concomitant]
     Active Substance: BORTEZOMIB
     Dosage: 1 MILLIGRAM/SQ. METER, DAYS - 4, -1, + 2, AND + 5
     Route: 042
  10. THALIDOMIDE [Concomitant]
     Active Substance: THALIDOMIDE
     Dosage: 100 MILLIGRAM, DAYS -4 TO +5
     Route: 048
  11. MELPHALAN [Concomitant]
     Active Substance: MELPHALAN
     Dosage: 100 MILLIGRAM, DAYS -4 AND - 1 (70 MG/M2 DAYS 04 AND -1 IF AGE }70)

REACTIONS (8)
  - Post procedural infection [Fatal]
  - Haematotoxicity [Unknown]
  - Hypophosphataemia [Unknown]
  - Neuropathy peripheral [Unknown]
  - Diarrhoea [Unknown]
  - Infection [Unknown]
  - Off label use [Unknown]
  - Drug ineffective for unapproved indication [Unknown]
